FAERS Safety Report 7328624-2 (Version None)
Quarter: 2011Q1

REPORT INFORMATION
  Report Type: 
  Country: None (occurrence: None)
  Receive Date: 20110225
  Receipt Date: 20110225
  Transmission Date: 20110831
  Serious: Yes (Other)
  Sender: FDA-Public Use
  Company Number: None

PATIENT
  Age: 46 Year
  Sex: Female
  Weight: 58.9676 kg

DRUGS (1)
  1. CLINDAMYCIN HCL [Suspect]
     Indication: SINUSITIS
     Dosage: 1 CAPSULE 3 TIMES PER DAY PO
     Route: 048
     Dates: start: 20110224, end: 20110224

REACTIONS (3)
  - DYSPEPSIA [None]
  - DIZZINESS [None]
  - PERIPHERAL COLDNESS [None]
